FAERS Safety Report 13023435 (Version 1)
Quarter: 2016Q4

REPORT INFORMATION
  Report Type: Spontaneous
  Country: IT (occurrence: IT)
  Receive Date: 20161213
  Receipt Date: 20161213
  Transmission Date: 20170207
  Serious: Yes (Hospitalization)
  Sender: FDA-Public Use
  Company Number: IT-BRISTOL-MYERS SQUIBB COMPANY-BMS-2016-103937

PATIENT
  Age: 43 Year
  Sex: Female

DRUGS (3)
  1. LIDOCAINE. [Suspect]
     Active Substance: LIDOCAINE
     Indication: NECK PAIN
     Dosage: 1 U, TOTAL
     Route: 030
     Dates: start: 20150603
  2. HYALURONIC ACID [Suspect]
     Active Substance: HYALURONIC ACID
     Indication: NECK PAIN
     Dosage: UNK
     Route: 065
     Dates: start: 20150603
  3. KENACORT [Suspect]
     Active Substance: TRIAMCINOLONE
     Indication: NECK PAIN
     Dosage: 1 U, TOTAL
     Route: 030
     Dates: start: 20150603

REACTIONS (2)
  - Pharyngeal oedema [Recovered/Resolved]
  - Dyspnoea [Recovered/Resolved]

NARRATIVE: CASE EVENT DATE: 20150603
